FAERS Safety Report 4819817-4 (Version None)
Quarter: 2005Q4

REPORT INFORMATION
  Report Type: 
  Country: None (occurrence: None)
  Receive Date: 20051102
  Receipt Date: 20051010
  Transmission Date: 20060501
  Serious: Yes (Other)
  Sender: FDA-Public Use
  Company Number: 2005BH002406

PATIENT
  Age: 1 Year
  Sex: Female

DRUGS (1)
  1. SODIUM CHLORIDE [Suspect]
     Indication: DRUG USE FOR UNKNOWN INDICATION
     Dosage: 0.9 PCT
     Dates: start: 20050821

REACTIONS (3)
  - DRUG HYPERSENSITIVITY [None]
  - GENERALISED ERYTHEMA [None]
  - RASH PAPULAR [None]
